FAERS Safety Report 7618521-7 (Version None)
Quarter: 2011Q3

REPORT INFORMATION
  Report Type: 
  Country: None (occurrence: None)
  Receive Date: 20110718
  Receipt Date: 20090406
  Transmission Date: 20111222
  Serious: Yes (Hospitalization, Other)
  Sender: FDA-Public Use
  Company Number: US-BAYER-200917870NA

PATIENT
  Age: 55 Year
  Sex: Female
  Weight: 54 kg

DRUGS (28)
  1. TRASYLOL [Suspect]
     Indication: PRODUCT USED FOR UNKNOWN INDICATION
     Dosage: UNK, INITIAL TEST DOSE
     Route: 042
     Dates: start: 20050203, end: 20050203
  2. TRASYLOL [Suspect]
     Dosage: 200 ML, LOADING DOSE
     Route: 042
     Dates: start: 20050203, end: 20050203
  3. ASPIRIN [Concomitant]
     Indication: PLATELET AGGREGATION INHIBITION
     Dosage: 81 MG, QD
     Route: 048
  4. DIOVAN [Concomitant]
     Dosage: 180 MG, QD
     Route: 048
     Dates: start: 20050127
  5. ALDACTONE [Concomitant]
     Indication: DIURETIC THERAPY
     Dosage: 2.5 MG, QD
     Route: 048
  6. CARDIOPLEGIA [Concomitant]
     Dosage: 800CC, UNK
     Route: 042
     Dates: start: 20050203, end: 20050203
  7. HEPARIN [Concomitant]
     Dosage: 30 U, UNK
     Route: 042
     Dates: start: 20050203, end: 20050203
  8. MANNITOL [Concomitant]
     Dosage: 50 CC, UNK
     Route: 042
     Dates: start: 20050203, end: 20050203
  9. BICARBONAT [Concomitant]
     Dosage: 100 CC, UNK
  10. TRASYLOL [Suspect]
     Dosage: 50 ML/HOUR INFUSION
     Route: 042
     Dates: start: 20050203, end: 20050203
  11. COREG [Concomitant]
     Indication: CARDIAC FAILURE
     Dosage: 3.125 MG, BID
     Route: 048
     Dates: start: 20050128
  12. GLYBURIDE [Concomitant]
     Indication: DIABETES MELLITUS
     Dosage: 10 MG, TID
     Route: 048
     Dates: start: 20050127
  13. VERSED [Concomitant]
     Dosage: 10 MG/ 1 DOSE
     Route: 042
     Dates: start: 20050203, end: 20050203
  14. SODIUM CHLORIDE [Concomitant]
     Dosage: 1000CC, UNK
     Route: 042
     Dates: start: 20050203, end: 20050203
  15. HYZAAR [Concomitant]
     Indication: HYPERTENSION
     Dosage: 50 MG, QD
     Route: 048
     Dates: end: 20050127
  16. LOVENOX [Concomitant]
     Indication: ANTICOAGULANT THERAPY
     Dosage: 1 MG/KG Q 12/HRS
     Route: 058
  17. LOPRESSOR [Concomitant]
     Indication: HYPERTENSION
     Dosage: 25 MG, BID
     Route: 048
     Dates: start: 20050129
  18. GLUCOVANCE [Concomitant]
     Indication: DIABETES MELLITUS
     Dosage: 500 MG, QD
     Route: 048
  19. HYDROCHLOROTHIAZIDE [Concomitant]
     Dosage: 12.5 MG, QD
     Route: 048
     Dates: start: 20050127
  20. VANCOMYCIN [Concomitant]
     Dosage: 1 G, UNK
     Route: 042
     Dates: start: 20050203, end: 20050203
  21. ISOSORBIDE DINITRATE [Concomitant]
     Indication: CARDIAC FAILURE
     Dosage: 10 MG, TID
     Route: 048
     Dates: start: 20050128
  22. LESCOL [Concomitant]
     Indication: CHOLESTEROSIS
     Dosage: 20 MG, QD
     Route: 048
  23. ISORDIL [Concomitant]
     Indication: VASOCONSTRICTION
     Dosage: 10 MG, TID
     Route: 048
     Dates: start: 20050128
  24. ETOMIDATE [Concomitant]
     Dosage: UNK
     Route: 042
     Dates: start: 20050203, end: 20050203
  25. ZINACEF [Concomitant]
     Dosage: 1.5 GRAM EVERY 8 HOURS X 3 DOSES
     Route: 042
     Dates: start: 20050203, end: 20050203
  26. LASIX [Concomitant]
     Indication: DIURETIC THERAPY
     Dosage: 40 MG, QD
     Route: 048
     Dates: start: 20050127
  27. DIGOXIN [Concomitant]
     Indication: HEART RATE INCREASED
     Dosage: 10 MG, TID
     Route: 048
     Dates: start: 20050127
  28. PROTAMINE SULFATE [Concomitant]
     Dosage: 250 MG, UNK
     Route: 042
     Dates: start: 20050203, end: 20050203

REACTIONS (12)
  - FEAR [None]
  - PAIN [None]
  - RENAL INJURY [None]
  - STRESS [None]
  - ANXIETY [None]
  - RENAL IMPAIRMENT [None]
  - CEREBROVASCULAR ACCIDENT [None]
  - EMOTIONAL DISTRESS [None]
  - UNEVALUABLE EVENT [None]
  - DEPRESSION [None]
  - MULTI-ORGAN FAILURE [None]
  - RENAL FAILURE ACUTE [None]
